FAERS Safety Report 24374821 (Version 2)
Quarter: 2024Q4

REPORT INFORMATION
  Report Type: Spontaneous
  Country: US (occurrence: US)
  Receive Date: 20240927
  Receipt Date: 20241110
  Transmission Date: 20250114
  Serious: No
  Sender: SANOFI AVENTIS
  Company Number: US-SA-2024SA271220

PATIENT
  Age: 91 Year
  Sex: Female

DRUGS (1)
  1. DUPIXENT [Suspect]
     Active Substance: DUPILUMAB
     Indication: Neurodermatitis
     Dosage: 300 MG, QOW
     Route: 058
     Dates: start: 20240413, end: 20241017

REACTIONS (4)
  - Peripheral swelling [Unknown]
  - Hernia [Unknown]
  - Pruritus [Unknown]
  - Vision blurred [Unknown]
